FAERS Safety Report 8083895-2 (Version None)
Quarter: 2012Q1

REPORT INFORMATION
  Report Type: 
  Country: None (occurrence: None)
  Receive Date: 20120128
  Receipt Date: 20110117
  Transmission Date: 20120608
  Serious: No
  Sender: FDA-Public Use
  Company Number: US-ABBOTT-11P-163-0699025-00

PATIENT
  Sex: Male
  Weight: 131.66 kg

DRUGS (7)
  1. ASCORBIC ACID [Concomitant]
     Indication: VITAMIN SUPPLEMENTATION
  2. VITAMIN D [Concomitant]
     Indication: VITAMIN SUPPLEMENTATION
  3. BONIVA [Concomitant]
     Indication: PRODUCT USED FOR UNKNOWN INDICATION
  4. METHOTREXATE [Concomitant]
     Indication: PRODUCT USED FOR UNKNOWN INDICATION
  5. FOLIC ACID [Concomitant]
     Indication: PRODUCT USED FOR UNKNOWN INDICATION
  6. HUMIRA [Suspect]
     Indication: ANKYLOSING SPONDYLITIS
     Dates: start: 20020101
  7. HUMIRA [Suspect]
     Indication: CROHN'S DISEASE

REACTIONS (3)
  - DYSPNOEA [None]
  - BRONCHITIS [None]
  - COUGH [None]
